FAERS Safety Report 7013402-4 (Version None)
Quarter: 2010Q3

REPORT INFORMATION
  Report Type: 
  Country: None (occurrence: None)
  Receive Date: 20100924
  Receipt Date: 20100920
  Transmission Date: 20110219
  Serious: Yes (Other)
  Sender: FDA-Public Use
  Company Number: US-BRISTOL-MYERS SQUIBB COMPANY-15296650

PATIENT
  Age: 51 Year
  Sex: Female

DRUGS (21)
  1. KENALOG [Suspect]
     Dates: start: 20091027
  2. MOBIC [Concomitant]
     Dosage: 1 TAB
     Route: 048
  3. MIRALAX [Concomitant]
  4. DONNATAL [Concomitant]
     Dosage: 1 TAB AS NEEDED BID
  5. CHANTIX [Concomitant]
     Route: 048
  6. VICODIN [Concomitant]
     Dosage: 1DF:5-500MG
  7. TOPROL-XL [Concomitant]
     Route: 048
  8. KLONOPIN [Concomitant]
     Route: 048
  9. VITAMIN E [Concomitant]
     Dosage: 1DF:100UNIT
  10. VITAMIN B-12 [Concomitant]
  11. PERCOCET [Concomitant]
     Dosage: 1DF:7.5-325MG
     Route: 048
  12. CALCIUM [Concomitant]
     Dosage: 1F:500 (1250) UNITS NOT SPECIFIED
  13. NABUMETONE [Concomitant]
     Dosage: 1 TABLET WITH FOOD
     Route: 048
  14. OXYCONTIN [Concomitant]
     Route: 048
  15. GINGER [Concomitant]
     Dosage: EXTRACT
  16. OSTEOCAL [Concomitant]
  17. FISH OIL [Concomitant]
  18. CELXA [Concomitant]
     Dosage: TABS
  19. ZOLOFT [Concomitant]
     Dosage: TABS;ALSO TAKEN 50MG
  20. OPANA ER [Concomitant]
  21. DARVON-N [Concomitant]
     Dosage: 1 DF -100-650MG
     Route: 048
     Dates: start: 20100517

REACTIONS (6)
  - ELBOW DEFORMITY [None]
  - FIBROMYALGIA [None]
  - PIGMENTATION DISORDER [None]
  - RHEUMATOID ARTHRITIS [None]
  - SCLERODERMA [None]
  - SYSTEMIC LUPUS ERYTHEMATOSUS [None]
